FAERS Safety Report 6258840-2 (Version None)
Quarter: 2009Q3

REPORT INFORMATION
  Report Type: 
  Country: None (occurrence: None)
  Receive Date: 20090707
  Receipt Date: 20090629
  Transmission Date: 20100115
  Serious: Yes (Hospitalization)
  Sender: FDA-Public Use
  Company Number: FR-B.I. PHARMACEUTICALS,INC./RIDGEFIELD-2008-FF-00265FF

PATIENT
  Age: 80 Year
  Sex: Male

DRUGS (5)
  1. JOSIR [Suspect]
     Indication: BENIGN PROSTATIC HYPERPLASIA
     Route: 048
     Dates: start: 20071128, end: 20080116
  2. PROSCAR [Concomitant]
     Indication: BENIGN PROSTATIC HYPERPLASIA
     Dosage: 5 MG
     Route: 048
     Dates: start: 20071128, end: 20080116
  3. PREVISCAN [Concomitant]
  4. CORDARONE [Concomitant]
  5. MONOTILDIEM [Concomitant]

REACTIONS (14)
  - ACUTE FEBRILE NEUTROPHILIC DERMATOSIS [None]
  - DRUG INEFFECTIVE [None]
  - EOSINOPHILIA [None]
  - LEUKOCYTOCLASTIC VASCULITIS [None]
  - LEUKOCYTOSIS [None]
  - PURPURA [None]
  - PYREXIA [None]
  - RASH ERYTHEMATOUS [None]
  - RASH MACULO-PAPULAR [None]
  - RASH PUSTULAR [None]
  - RENAL IMPAIRMENT [None]
  - RESTLESS LEGS SYNDROME [None]
  - SKIN EXFOLIATION [None]
  - TOXIC SKIN ERUPTION [None]
